FAERS Safety Report 7913311-X (Version None)
Quarter: 2011Q4

REPORT INFORMATION
  Report Type: 
  Country: None (occurrence: None)
  Receive Date: 20111114
  Receipt Date: 20111104
  Transmission Date: 20120403
  Serious: Yes (Hospitalization, Other)
  Sender: FDA-Public Use
  Company Number: US-ASTRAZENECA-2011SE33679

PATIENT
  Age: 85 Year
  Sex: Male

DRUGS (9)
  1. POTASSIUM CHLORIDE [Concomitant]
     Route: 048
  2. CALCIUM MAGNESIUM [Concomitant]
     Dosage: 1 DAILY
  3. LORAZEPAM [Concomitant]
     Route: 048
  4. FOSINOPRIL SODIUM [Concomitant]
     Route: 048
  5. TERAZOSIN HCL [Concomitant]
     Route: 048
  6. ASPIRIN [Concomitant]
     Route: 048
  7. ASCORBIC ACID [Concomitant]
  8. CRESTOR [Suspect]
     Route: 048
  9. FUROSEMIDE [Concomitant]
     Route: 048

REACTIONS (4)
  - TRANSIENT ISCHAEMIC ATTACK [None]
  - DRUG INEFFECTIVE [None]
  - HYPERTENSION [None]
  - SINUS ARRHYTHMIA [None]
